FAERS Safety Report 4462633-6 (Version None)
Quarter: 2004Q3

REPORT INFORMATION
  Report Type: 
  Country: None (occurrence: None)
  Receive Date: 20040929
  Receipt Date: 20040913
  Transmission Date: 20050211
  Serious: Yes (Hospitalization)
  Sender: FDA-Public Use
  Company Number: 201357

PATIENT
  Age: 50 Year
  Sex: Female

DRUGS (2)
  1. AVONEX [Suspect]
     Indication: MULTIPLE SCLEROSIS
     Dosage: 30 MG QW IM
     Route: 030
     Dates: start: 19990901
  2. ASPIRIN [Concomitant]

REACTIONS (4)
  - HYDRONEPHROSIS [None]
  - INFECTION [None]
  - NEPHROLITHIASIS [None]
  - UROSEPSIS [None]
